FAERS Safety Report 19649462 (Version 2)
Quarter: 2021Q3

REPORT INFORMATION
  Report Type: Other
  Country: US (occurrence: US)
  Receive Date: 20210803
  Receipt Date: 20210917
  Transmission Date: 20211014
  Serious: Yes (Other)
  Sender: FDA-Public Use
  Company Number: US-INTERCEPT-PM2021001579

PATIENT
  Age: 63 Year
  Sex: Female
  Weight: 54.15 kg

DRUGS (9)
  1. OCALIVA [Suspect]
     Active Substance: OBETICHOLIC ACID
     Dosage: 5 MILLIGRAM, QOD
     Route: 048
     Dates: start: 2021, end: 2021
  2. VITAMIN A [RETINOL] [Concomitant]
     Active Substance: RETINOL
     Dosage: 1 DOSAGE FORM, QD
  3. VITAMIN C [Concomitant]
     Active Substance: ASCORBIC ACID
     Dosage: 500 MILLIGRAM, QD
  4. MILK THISTLE [CURCUMA LONGA;SILYBUM MARIANUM;TARAXACUM OFFICINALE] [Concomitant]
     Dosage: UNK
  5. ZYRTEC [Concomitant]
     Active Substance: CETIRIZINE HYDROCHLORIDE
     Dosage: 10 MILLIGRAM, QD
     Route: 048
  6. VITAMIN D2 [Concomitant]
     Active Substance: ERGOCALCIFEROL
     Dosage: 50000 INTERNATIONAL UNIT, QW
     Route: 048
  7. POLYETHYLENE GLYCOL 3350 AND ELECTROLYTES [Concomitant]
     Active Substance: POLYETHYLENE GLYCOL 3350\POTASSIUM CHLORIDE\SODIUM BICARBONATE\SODIUM CHLORIDE\SODIUM SULFATE
     Dosage: UNK
  8. OCALIVA [Suspect]
     Active Substance: OBETICHOLIC ACID
     Indication: PRIMARY BILIARY CHOLANGITIS
     Dosage: 5 MILLIGRAM, QD
     Route: 048
     Dates: start: 201710
  9. OCALIVA [Suspect]
     Active Substance: OBETICHOLIC ACID
     Dosage: 5 MILLIGRAM, QD
     Route: 048
     Dates: start: 20210225, end: 20210606

REACTIONS (14)
  - Vitamin A deficiency [Unknown]
  - Drug intolerance [Unknown]
  - Stress [Unknown]
  - Hepatic fibrosis [Recovering/Resolving]
  - Insomnia [Recovered/Resolved]
  - Pain of skin [Unknown]
  - Haemorrhoids [Unknown]
  - Impaired work ability [Unknown]
  - Blood alkaline phosphatase abnormal [Unknown]
  - Fatigue [Unknown]
  - Intentional product use issue [Recovered/Resolved]
  - Tumour excision [Unknown]
  - Hepatocellular injury [Unknown]
  - Pruritus [Recovered/Resolved]

NARRATIVE: CASE EVENT DATE: 201910
